FAERS Safety Report 9748680 (Version 1)
Quarter: 2013Q4

REPORT INFORMATION
  Report Type: Spontaneous
  Country: US (occurrence: US)
  Receive Date: 20131212
  Receipt Date: 20131212
  Transmission Date: 20140711
  Serious: No
  Sender: FDA-Public Use
  Company Number: US-B.I. PHARMACEUTICALS,INC./RIDGEFIELD-2013-BI-39293BP

PATIENT
  Age: 85 Year
  Sex: Female

DRUGS (3)
  1. SPIRIVA [Suspect]
     Dosage: 18 MCG
     Route: 055
     Dates: start: 201305
  2. ALBUTEROL INHALER [Concomitant]
     Route: 055
     Dates: start: 201305
  3. UNSPECIFIED NEBULIZER TREATMENT [Concomitant]
     Route: 055
     Dates: start: 201305

REACTIONS (3)
  - Ocular hyperaemia [Not Recovered/Not Resolved]
  - Periorbital contusion [Not Recovered/Not Resolved]
  - Eye irritation [Not Recovered/Not Resolved]
